FAERS Safety Report 15244178 (Version 1)
Quarter: 2018Q3

REPORT INFORMATION
  Report Type: Spontaneous
  Country: US (occurrence: US)
  Receive Date: 20180806
  Receipt Date: 20180806
  Transmission Date: 20181010
  Serious: No
  Sender: FDA-Public Use
  Company Number: US-PFIZER INC-2018313513

PATIENT
  Age: 63 Year
  Sex: Male

DRUGS (3)
  1. LEVOFLOXACIN. [Suspect]
     Active Substance: LEVOFLOXACIN
     Dosage: UNK
  2. GABAPENTIN. [Suspect]
     Active Substance: GABAPENTIN
     Dosage: UNK
  3. BYETTA [Suspect]
     Active Substance: EXENATIDE
     Dosage: UNK

REACTIONS (1)
  - Drug hypersensitivity [Unknown]
